FAERS Safety Report 6762514-9 (Version None)
Quarter: 2010Q2

REPORT INFORMATION
  Report Type: 
  Country: None (occurrence: None)
  Receive Date: 20100609
  Receipt Date: 20100607
  Transmission Date: 20101027
  Serious: No
  Sender: FDA-Public Use
  Company Number: US-CEPHALON-2010003101

PATIENT
  Sex: Female
  Weight: 58 kg

DRUGS (5)
  1. FENTORA [Suspect]
     Indication: BRAIN NEOPLASM
     Route: 002
     Dates: start: 20100604
  2. PERCOCET [Concomitant]
     Indication: BRAIN NEOPLASM
     Dates: start: 20090101
  3. PERCOCET [Concomitant]
     Indication: PAIN
  4. TOPAMAX [Concomitant]
     Indication: HEADACHE
     Dates: start: 20070101
  5. ZOFRAN [Concomitant]
     Indication: NAUSEA
     Dates: start: 20100301

REACTIONS (3)
  - DRUG DISPENSING ERROR [None]
  - DRUG INEFFECTIVE FOR UNAPPROVED INDICATION [None]
  - DRUG PRESCRIBING ERROR [None]
